FAERS Safety Report 8658588 (Version 4)
Quarter: 2012Q4

REPORT INFORMATION
  Report Type: Report from Study
  Country: DE (occurrence: DE)
  Receive Date: 20120710
  Receipt Date: 20121204
  Transmission Date: 20130627
  Serious: Yes (Disabling, Other)
  Sender: FDA-Public Use
  Company Number: PHHO2012DE009996

PATIENT
  Sex: Female
  Weight: 62 kg

DRUGS (8)
  1. INC424 [Suspect]
     Indication: POLYCYTHAEMIA VERA
     Dosage: 15 mg, BID
     Route: 048
     Dates: start: 20111129, end: 20111228
  2. INC424 [Suspect]
     Indication: MYELOFIBROSIS
     Dosage: 10 mg, BID
     Route: 048
     Dates: start: 20111230, end: 20120224
  3. INC424 [Suspect]
     Dosage: 15 mg, BID
     Route: 048
     Dates: start: 20120225, end: 20120417
  4. INC424 [Suspect]
     Dosage: 5 mg, BID
     Route: 048
     Dates: start: 20120418, end: 20120502
  5. INC424 [Suspect]
     Dosage: 10 mg, BID
     Route: 048
     Dates: start: 20120503, end: 20120622
  6. INC424 [Suspect]
     Dosage: 10 mg and 15 mg per day
     Route: 048
     Dates: start: 20120623, end: 20120712
  7. EXJADE [Suspect]
     Indication: IRON OVERLOAD
     Dosage: 500 mg, TID
     Route: 048
  8. RED BLOOD CELLS [Concomitant]

REACTIONS (2)
  - Macular degeneration [Not Recovered/Not Resolved]
  - Cataract [Not Recovered/Not Resolved]
